FAERS Safety Report 8789379 (Version 1)
Quarter: 2012Q4

REPORT INFORMATION
  Report Type: Spontaneous
  Country: US (occurrence: None)
  Receive Date: 20120904
  Receipt Date: 20120904
  Transmission Date: 20130627
  Serious: Yes (Other)
  Sender: FDA-Public Use
  Company Number: JPI-P-024344

PATIENT
  Age: 26 Year
  Sex: Female
  Weight: 54.43 kg

DRUGS (8)
  1. XYREM [Suspect]
     Indication: CATAPLEXY
     Dates: start: 200411, end: 201109
  2. TOPIRAMATE [Concomitant]
  3. MONTELUKAST SODIUM [Concomitant]
  4. DEXLANSOPRAZOLE (60 MG) [Concomitant]
  5. VITAMIN D3 (5000 IU) [Concomitant]
  6. CRANBERRY WITH VITAMIN C EXTRACT [Concomitant]
  7. CEPHALEXIN (500 MG) [Concomitant]
  8. OLOPATADINE HYDROCHLORIDE [Concomitant]

REACTIONS (25)
  - Weight decreased [None]
  - Systemic lupus erythematosus [None]
  - Pregnancy [None]
  - Exposure during pregnancy [None]
  - Postpartum depression [None]
  - Weight increased [None]
  - Hysterectomy [None]
  - Brain operation [None]
  - Insomnia [None]
  - Food craving [None]
  - Tinnitus [None]
  - Emotional disorder [None]
  - Asthenia [None]
  - Feeling abnormal [None]
  - Tremor [None]
  - Headache [None]
  - Initial insomnia [None]
  - Crying [None]
  - Dyskinesia [None]
  - Coordination abnormal [None]
  - Head injury [None]
  - Abdominal pain upper [None]
  - Diarrhoea [None]
  - Drug effect decreased [None]
  - Product quality issue [None]
